FAERS Safety Report 9934870 (Version 1)
Quarter: 2014Q1

REPORT INFORMATION
  Report Type: Spontaneous
  Country: CN (occurrence: CN)
  Receive Date: 20140228
  Receipt Date: 20140228
  Transmission Date: 20141002
  Serious: Yes (Other)
  Sender: FDA-Public Use
  Company Number: ALCN2014CN001268

PATIENT
  Sex: 0

DRUGS (1)
  1. FLUORESCITE [Suspect]
     Indication: ANGIOGRAM RETINA
     Dosage: 1 UNK, ONCE/SINGLE
     Route: 042

REACTIONS (1)
  - Laryngeal oedema [Unknown]
